FAERS Safety Report 7910182-2 (Version None)
Quarter: 2011Q4

REPORT INFORMATION
  Report Type: 
  Country: None (occurrence: None)
  Receive Date: 20111111
  Receipt Date: 20111108
  Transmission Date: 20120403
  Serious: Yes (Death, Other)
  Sender: FDA-Public Use
  Company Number: GB-ROCHE-1004459

PATIENT
  Sex: Female
  Weight: 63 kg

DRUGS (6)
  1. LUCENTIS [Suspect]
     Indication: AGE-RELATED MACULAR DEGENERATION
     Route: 050
     Dates: start: 20101124
  2. FERROUS FUMARATE [Concomitant]
  3. VOLTAREN [Concomitant]
  4. CO-DYDRAMOL [Concomitant]
  5. FUROSEMIDE [Concomitant]
  6. RAMIPRIL [Concomitant]

REACTIONS (8)
  - HEAD INJURY [None]
  - ARTERIOSCLEROSIS CORONARY ARTERY [None]
  - HEPATIC CONGESTION [None]
  - PULMONARY CONGESTION [None]
  - CEREBRAL ARTERIOSCLEROSIS [None]
  - MYOCARDIAL ISCHAEMIA [None]
  - MYOCARDIAL INFARCTION [None]
  - FALL [None]
